FAERS Safety Report 10896643 (Version 8)
Quarter: 2015Q2

REPORT INFORMATION
  Report Type: Report from Study
  Country: CN (occurrence: CN)
  Receive Date: 20150309
  Receipt Date: 20150528
  Transmission Date: 20150821
  Serious: Yes (Life-Threatening, Hospitalization)
  Sender: FDA-Public Use
  Company Number: CN-ROCHE-1548524

PATIENT
  Age: 65 Year
  Sex: Female
  Weight: 48 kg

DRUGS (26)
  1. FUROSEMIDE. [Concomitant]
     Active Substance: FUROSEMIDE
     Indication: POLYURIA
     Route: 065
     Dates: start: 20131208
  2. ALANYL-GLUTAMINE [Concomitant]
     Route: 065
     Dates: start: 20150227, end: 20150228
  3. PALONOSETRON HYDROCHLORIDE [Concomitant]
     Active Substance: PALONOSETRON HYDROCHLORIDE
     Route: 065
     Dates: start: 20131209
  4. POTASSIUM CHLORIDE. [Concomitant]
     Active Substance: POTASSIUM CHLORIDE
     Route: 065
     Dates: start: 20131208
  5. ALANYL-GLUTAMINE [Concomitant]
     Route: 065
     Dates: start: 20150302, end: 20150302
  6. CAPECITABINE. [Suspect]
     Active Substance: CAPECITABINE
     Indication: GASTRIC CANCER
     Dosage: LAST DOSE PRIOR TO SAE ON 02/APR/2014
     Route: 048
     Dates: start: 20131022
  7. ALANYL-GLUTAMINE [Concomitant]
     Route: 065
     Dates: start: 20150304, end: 20150310
  8. TRASTUZUMAB [Suspect]
     Active Substance: TRASTUZUMAB
     Indication: GASTRIC CANCER
     Dosage: LOADING DOSE
     Route: 042
     Dates: start: 20131022, end: 20131022
  9. TRASTUZUMAB [Suspect]
     Active Substance: TRASTUZUMAB
     Dosage: MAINTAINANCE DOSE; LAST DOSE PRIOR TO SAE ON 09/FEB/2015
     Route: 042
  10. COMPOUND GLUCOSE ELECTROLYTE-MG3 [Concomitant]
     Route: 065
     Dates: start: 20131208
  11. VALSARTAN. [Concomitant]
     Active Substance: VALSARTAN
     Indication: HYPOTENSION
  12. OCTREOTIDE ACETATE. [Concomitant]
     Active Substance: OCTREOTIDE ACETATE
     Indication: HAEMOSTASIS
     Route: 065
     Dates: start: 20150227, end: 20150228
  13. OCTREOTIDE ACETATE. [Concomitant]
     Active Substance: OCTREOTIDE ACETATE
     Route: 065
     Dates: start: 20150302, end: 20150313
  14. POTASSIUM CHLORIDE. [Concomitant]
     Active Substance: POTASSIUM CHLORIDE
     Route: 065
     Dates: start: 20150316
  15. FUROSEMIDE. [Concomitant]
     Active Substance: FUROSEMIDE
     Route: 065
     Dates: start: 20150311, end: 20150312
  16. OMEPRAZOLE SODIUM [Concomitant]
     Active Substance: OMEPRAZOLE SODIUM
     Route: 065
     Dates: start: 20131209
  17. MANNITOL 20% [Concomitant]
     Indication: POLYURIA
     Route: 065
     Dates: start: 20131209
  18. ESOMEPRAZOLE SODIUM. [Concomitant]
     Active Substance: ESOMEPRAZOLE SODIUM
     Route: 065
     Dates: start: 20150227, end: 20150308
  19. ESOMEPRAZOLE SODIUM. [Concomitant]
     Active Substance: ESOMEPRAZOLE SODIUM
     Route: 065
     Dates: start: 20150310, end: 20150315
  20. COBAMAMIDE [Concomitant]
     Active Substance: COBAMAMIDE
     Indication: NEUROTOXICITY
     Route: 065
     Dates: start: 20140414
  21. ALANYL-GLUTAMINE [Concomitant]
     Route: 065
     Dates: start: 20150312, end: 20150314
  22. CISPLATIN. [Suspect]
     Active Substance: CISPLATIN
     Indication: GASTRIC CANCER
     Dosage: LAST DOSE PRIOR TO SAE ON 19/MAR/2014
     Route: 042
     Dates: start: 20131022
  23. VALSARTAN. [Concomitant]
     Active Substance: VALSARTAN
     Indication: HYPERTENSION
     Route: 065
     Dates: start: 20131015, end: 20150306
  24. POTASSIUM CHLORIDE. [Concomitant]
     Active Substance: POTASSIUM CHLORIDE
     Route: 065
     Dates: start: 20150227, end: 20150314
  25. ESOMEPRAZOLE SODIUM. [Concomitant]
     Active Substance: ESOMEPRAZOLE SODIUM
     Route: 065
     Dates: start: 20150209, end: 20150209
  26. GLUTATHIONE [Concomitant]
     Active Substance: GLUTATHIONE

REACTIONS (1)
  - Upper gastrointestinal haemorrhage [Recovered/Resolved]

NARRATIVE: CASE EVENT DATE: 20150227
